FAERS Safety Report 12540643 (Version 1)
Quarter: 2016Q3

REPORT INFORMATION
  Report Type: Spontaneous
  Country: US (occurrence: US)
  Receive Date: 20160708
  Receipt Date: 20160708
  Transmission Date: 20161109
  Serious: No
  Sender: FDA-Public Use
  Company Number: US-TEVA-651502USA

PATIENT
  Sex: Female

DRUGS (23)
  1. ZECUITY [Suspect]
     Active Substance: SUMATRIPTAN SUCCINATE
     Indication: MIGRAINE
     Dosage: 6.5 MG PER 4 HOURS, 4 PATCHES A MONTH
     Route: 062
     Dates: start: 20160128, end: 2016
  2. KETOROLAC [Concomitant]
     Active Substance: KETOROLAC\KETOROLAC TROMETHAMINE
  3. PROCHLORPERAZINE. [Concomitant]
     Active Substance: PROCHLORPERAZINE
  4. METHYLPHENIDATE. [Concomitant]
     Active Substance: METHYLPHENIDATE
  5. CAMBIA [Concomitant]
     Active Substance: DICLOFENAC POTASSIUM
  6. PROMETHAZINE [Concomitant]
     Active Substance: PROMETHAZINE\PROMETHAZINE HYDROCHLORIDE
  7. VITAMIN D [Concomitant]
     Active Substance: CHOLECALCIFEROL
  8. DULOXETINE. [Concomitant]
     Active Substance: DULOXETINE
  9. ALPRAZOLAM. [Concomitant]
     Active Substance: ALPRAZOLAM
  10. AZITHROMYCIN ANHYDROUS. [Concomitant]
     Active Substance: AZITHROMYCIN ANHYDROUS
  11. TIZANIDINE. [Concomitant]
     Active Substance: TIZANIDINE
  12. MATZIM LA [Concomitant]
     Active Substance: DILTIAZEM HYDROCHLORIDE
  13. SULFAMETHOXAZOLE-TRIMETHOPRIM (SMZ) [Concomitant]
     Active Substance: SULFAMETHOXAZOLE\TRIMETHOPRIM
  14. HYDROXYZINE [Concomitant]
     Active Substance: HYDROXYZINE\HYDROXYZINE HYDROCHLORIDE
  15. METOCLOPRAMIDE. [Concomitant]
     Active Substance: METOCLOPRAMIDE
  16. SERTRALINE [Concomitant]
     Active Substance: SERTRALINE HYDROCHLORIDE
  17. TRAMADOL. [Concomitant]
     Active Substance: TRAMADOL
  18. SUMATRIPTAN. [Concomitant]
     Active Substance: SUMATRIPTAN
  19. ACETAMINOPHEN\HYDROCODONE BITARTRATE [Concomitant]
     Active Substance: ACETAMINOPHEN\HYDROCODONE BITARTRATE
  20. ONDANSETRON [Concomitant]
     Active Substance: ONDANSETRON
  21. CHLORPROMAZINE. [Concomitant]
     Active Substance: CHLORPROMAZINE
  22. FLUCONAZOLE. [Concomitant]
     Active Substance: FLUCONAZOLE
  23. INDOMETHACIN. [Concomitant]
     Active Substance: INDOMETHACIN

REACTIONS (1)
  - Application site urticaria [Unknown]

NARRATIVE: CASE EVENT DATE: 2016
